FAERS Safety Report 4319710-X (Version None)
Quarter: 2004Q1

REPORT INFORMATION
  Report Type: 
  Country: None (occurrence: None)
  Receive Date: 20040316
  Receipt Date: 20040119
  Transmission Date: 20041129
  Serious: Yes (Other)
  Sender: FDA-Public Use
  Company Number: 2003-06431

PATIENT
  Age: 48 Year
  Sex: Female
  Weight: 55.7924 kg

DRUGS (13)
  1. EMTRICITABINE [Suspect]
     Indication: HIV INFECTION
     Dosage: 200 MG QD PO
     Route: 048
     Dates: start: 20030527
  2. KALETRA [Suspect]
     Indication: HIV INFECTION
     Dosage: 3 EACH BID PO
     Route: 048
     Dates: start: 20030527
  3. STAVUDINE XR [Suspect]
     Indication: HIV INFECTION
     Dosage: 75 MG QD PO
     Route: 048
     Dates: start: 20030527
  4. LACTULOSE [Concomitant]
  5. REGLAN [Concomitant]
  6. CLINDAMYCIN HCL [Concomitant]
  7. CLARITHROMYCIN [Concomitant]
  8. ETHAMBUTOL HCL [Concomitant]
  9. PENTAMIDINE [Concomitant]
  10. TYLENOL (CAPLET) [Concomitant]
  11. SIMETHICONE [Concomitant]
  12. COUMADIN [Concomitant]
  13. PERCOCET [Concomitant]

REACTIONS (2)
  - DEEP VEIN THROMBOSIS [None]
  - GAMMA-GLUTAMYLTRANSFERASE INCREASED [None]
